FAERS Safety Report 4971386-4 (Version None)
Quarter: 2006Q2

REPORT INFORMATION
  Report Type: 
  Country: None (occurrence: None)
  Receive Date: 20060406
  Receipt Date: 20060330
  Transmission Date: 20061013
  Serious: Yes (Hospitalization)
  Sender: FDA-Public Use
  Company Number: 200611152GDS

PATIENT
  Age: 72 Year
  Sex: Male

DRUGS (5)
  1. CIPROXIN (CIPROFLOXACIN) [Suspect]
     Indication: URINARY TRACT INFECTION
     Dosage: 200 MG, BID, INTRAVENOUS
     Route: 042
     Dates: start: 20060206, end: 20060210
  2. TRIATEC [Concomitant]
  3. SORTIS [Concomitant]
  4. PLAVIX [Concomitant]
  5. SERETIDE MITE [Concomitant]

REACTIONS (6)
  - CHEYNE-STOKES RESPIRATION [None]
  - DEPRESSED LEVEL OF CONSCIOUSNESS [None]
  - DISTURBANCE IN ATTENTION [None]
  - DYSARTHRIA [None]
  - INSOMNIA [None]
  - NEUROTOXICITY [None]
